FAERS Safety Report 10409154 (Version 8)
Quarter: 2015Q2

REPORT INFORMATION
  Report Type: Report from Study
  Country: CA (occurrence: CA)
  Receive Date: 20140826
  Receipt Date: 20150506
  Transmission Date: 20150821
  Serious: Yes (Other)
  Sender: FDA-Public Use
  Company Number: CA-ROCHE-1180510

PATIENT
  Age: 52 Year
  Sex: Female
  Weight: 67 kg

DRUGS (12)
  1. ACTEMRA [Suspect]
     Active Substance: TOCILIZUMAB
     Route: 042
     Dates: start: 20130808
  2. ACTEMRA [Suspect]
     Active Substance: TOCILIZUMAB
     Route: 042
     Dates: start: 20140417
  3. ACTEMRA [Suspect]
     Active Substance: TOCILIZUMAB
     Route: 042
     Dates: start: 20130418
  4. ACTEMRA [Suspect]
     Active Substance: TOCILIZUMAB
     Route: 042
  5. ADVIL [Concomitant]
     Active Substance: IBUPROFEN
  6. PREDNISONE. [Concomitant]
     Active Substance: PREDNISONE
  7. ACTEMRA [Suspect]
     Active Substance: TOCILIZUMAB
     Indication: RHEUMATOID ARTHRITIS
     Route: 042
     Dates: start: 20120821
  8. ACTEMRA [Suspect]
     Active Substance: TOCILIZUMAB
     Route: 042
     Dates: start: 20130711
  9. SULFASALAZINE. [Concomitant]
     Active Substance: SULFASALAZINE
  10. ACTEMRA [Suspect]
     Active Substance: TOCILIZUMAB
     Route: 042
     Dates: start: 20130515
  11. RAMIPRIL. [Concomitant]
     Active Substance: RAMIPRIL
  12. HYDRAZIDE (CANADA) [Concomitant]

REACTIONS (15)
  - Deafness unilateral [Recovering/Resolving]
  - Influenza [Not Recovered/Not Resolved]
  - Headache [Recovered/Resolved]
  - Liver function test abnormal [Recovered/Resolved]
  - Urinary tract infection [Recovering/Resolving]
  - Menorrhagia [Unknown]
  - Tinnitus [Recovered/Resolved]
  - Tinnitus [Recovered/Resolved]
  - Heart rate increased [Unknown]
  - Fall [Unknown]
  - Blood pressure increased [Not Recovered/Not Resolved]
  - Arthralgia [Not Recovered/Not Resolved]
  - Hepatic enzyme increased [Not Recovered/Not Resolved]
  - Weight increased [Unknown]
  - Headache [Recovered/Resolved]

NARRATIVE: CASE EVENT DATE: 20130113
